FAERS Safety Report 15533726 (Version 2)
Quarter: 2019Q4

REPORT INFORMATION
  Report Type: Spontaneous
  Country: FR (occurrence: FR)
  Receive Date: 20181019
  Receipt Date: 20191119
  Transmission Date: 20200122
  Serious: Yes (Hospitalization)
  Sender: FDA-Public Use
  Company Number: FR-ALLERGAN-1849548US

PATIENT
  Sex: Female

DRUGS (4)
  1. FOLLITROPIN ALFA [Suspect]
     Active Substance: FOLLITROPIN
     Dosage: 225 IU, QD
     Route: 058
     Dates: start: 201806, end: 201806
  2. OVITRELLE [Suspect]
     Active Substance: CHORIOGONADOTROPIN ALFA
     Indication: IN VITRO FERTILISATION
     Dosage: 1 DF, QD
     Route: 058
     Dates: start: 20180625
  3. TRIPTORELIN PAMOATE - BP [Suspect]
     Active Substance: TRIPTORELIN PAMOATE
     Indication: IN VITRO FERTILISATION
     Dosage: 1 DF, QD
     Route: 030
     Dates: start: 201806
  4. FOLLITROPIN ALFA [Suspect]
     Active Substance: FOLLITROPIN
     Indication: IN VITRO FERTILISATION
     Dosage: 150 IU, QD FOR 3 DAYS, SUBCUTANEOUS
     Route: 058
     Dates: start: 201806

REACTIONS (4)
  - Off label use [Unknown]
  - Ovarian hyperstimulation syndrome [Recovered/Resolved]
  - Ascites [Recovered/Resolved]
  - Dyspnoea [Recovered/Resolved]

NARRATIVE: CASE EVENT DATE: 201806
